FAERS Safety Report 5927874-7 (Version None)
Quarter: 2008Q4

REPORT INFORMATION
  Report Type: 
  Country: None (occurrence: None)
  Receive Date: 20081023
  Receipt Date: 20080902
  Transmission Date: 20090506
  Serious: Yes (Hospitalization)
  Sender: FDA-Public Use
  Company Number: FR-BRISTOL-MYERS SQUIBB COMPANY-14379804

PATIENT
  Age: 83 Year
  Sex: Male

DRUGS (1)
  1. ENDOXAN TABS [Suspect]
     Route: 065
     Dates: start: 20080201, end: 20080624

REACTIONS (1)
  - EJECTION FRACTION DECREASED [None]
